FAERS Safety Report 16298188 (Version 2)
Quarter: 2021Q1

REPORT INFORMATION
  Report Type: Other
  Country: CA (occurrence: CA)
  Receive Date: 20190510
  Receipt Date: 20210208
  Transmission Date: 20210419
  Serious: Yes (Other)
  Sender: FDA-Public Use
  Company Number: CA-APOTEX-2019AP013449

PATIENT
  Age: 47 Year
  Sex: Female

DRUGS (1)
  1. APO?TAMOX TAB 10MG [Suspect]
     Active Substance: TAMOXIFEN CITRATE
     Indication: BREAST MASS
     Dosage: UNK
     Route: 048

REACTIONS (6)
  - Malignant neoplasm progression [Unknown]
  - Menorrhagia [Unknown]
  - Metastases to spine [Unknown]
  - Metastases to liver [Unknown]
  - Metastases to meninges [Unknown]
  - Metastases to pelvis [Unknown]
